FAERS Safety Report 8319414-2 (Version None)
Quarter: 2012Q2

REPORT INFORMATION
  Report Type: 
  Country: None (occurrence: None)
  Receive Date: 20120427
  Receipt Date: 20120423
  Transmission Date: 20120825
  Serious: Yes (Death)
  Sender: FDA-Public Use
  Company Number: PHHY2012US035796

PATIENT
  Age: 57 Year
  Sex: Female

DRUGS (9)
  1. CLONAZEPAM [Suspect]
     Dosage: UNK UKN, UNK
  2. ANTIMALARIALS [Suspect]
     Dosage: UNK UKN, UNK
  3. BACLOFEN [Suspect]
     Dosage: UNK UKN, UNK
  4. VENLAFAXINE [Suspect]
     Dosage: UNK UKN, UNK
  5. DIPHENHYDRAMINE HCL [Suspect]
     Dosage: UNK UKN, UNK
  6. DILTIAZEM [Suspect]
     Dosage: UNK UKN, UNK
  7. FLUOXETINE [Suspect]
     Dosage: UNK UKN, UNK
  8. GABAPENTIN [Suspect]
     Dosage: UNK UKN, UNK
  9. METHOTREXATE [Suspect]
     Dosage: UNK UKN, UNK

REACTIONS (1)
  - COMPLETED SUICIDE [None]
